FAERS Safety Report 25562200 (Version 1)
Quarter: 2025Q3

REPORT INFORMATION
  Report Type: Spontaneous
  Country: EU (occurrence: EU)
  Receive Date: 20250716
  Receipt Date: 20250716
  Transmission Date: 20251021
  Serious: Yes (Other)
  Sender: ALEXION PHARMACEUTICALS
  Company Number: None

PATIENT
  Age: 63 Year
  Sex: Female
  Weight: 59 kg

DRUGS (1)
  1. TAGRISSO [Suspect]
     Active Substance: OSIMERTINIB
     Indication: Lung neoplasm malignant
     Dates: start: 20240109, end: 20240206

REACTIONS (2)
  - Hepatic enzyme increased [Recovered/Resolved]
  - Liver injury [Recovered/Resolved]

NARRATIVE: CASE EVENT DATE: 20240206
